FAERS Safety Report 9790160 (Version 1)
Quarter: 2013Q4

REPORT INFORMATION
  Report Type: Spontaneous
  Country: US (occurrence: US)
  Receive Date: 20131231
  Receipt Date: 20131231
  Transmission Date: 20140711
  Serious: Yes (Other)
  Sender: FDA-Public Use
  Company Number: US-ELI_LILLY_AND_COMPANY-US201312007490

PATIENT
  Age: 58 Year
  Sex: Male

DRUGS (4)
  1. HUMULIN NPH [Suspect]
     Indication: TYPE 2 DIABETES MELLITUS
     Route: 065
  2. INSULIN HUMAN [Suspect]
     Route: 065
  3. LANTUS [Concomitant]
  4. LEVEMIR [Concomitant]

REACTIONS (7)
  - Dry gangrene [Unknown]
  - Nail injury [Unknown]
  - Wound [Unknown]
  - Aggression [Unknown]
  - Neuropathy peripheral [Not Recovered/Not Resolved]
  - Glycosylated haemoglobin increased [Unknown]
  - Injection site haemorrhage [Unknown]
